FAERS Safety Report 9749309 (Version 1)
Quarter: 2013Q4

REPORT INFORMATION
  Report Type: Spontaneous
  Country: US (occurrence: US)
  Receive Date: 20131212
  Receipt Date: 20131212
  Transmission Date: 20140711
  Serious: No
  Sender: FDA-Public Use
  Company Number: US-INCYTE CORPORATION-2013IN002578

PATIENT
  Sex: Male

DRUGS (8)
  1. JAKAFI [Suspect]
     Indication: MYELOFIBROSIS
     Dosage: 5 MG, QD
     Route: 048
  2. SELENIUM [Concomitant]
  3. AVAPRO [Concomitant]
  4. METFORMIN [Concomitant]
  5. SIMVASTATIN [Concomitant]
  6. CARVEDILOL [Concomitant]
  7. OMEPRAZOLE [Concomitant]
  8. GLIPIZIDE XL [Concomitant]

REACTIONS (1)
  - Malaise [Unknown]
